FAERS Safety Report 6109077-9 (Version None)
Quarter: 2009Q1

REPORT INFORMATION
  Report Type: 
  Country: None (occurrence: None)
  Receive Date: 20090310
  Receipt Date: 20090227
  Transmission Date: 20090719
  Serious: Yes (Hospitalization, Other)
  Sender: FDA-Public Use
  Company Number: US-ELI_LILLY_AND_COMPANY-US200703005116

PATIENT
  Sex: Female

DRUGS (9)
  1. FORTEO [Suspect]
     Dosage: UNK, UNK
     Dates: start: 20040101, end: 20040801
  2. FORTEO [Suspect]
     Dates: start: 20070120, end: 20070217
  3. FORTEO [Suspect]
     Dosage: UNK, UNK
     Dates: start: 20070319, end: 20070101
  4. FORTEO [Suspect]
     Dates: start: 20090201
  5. OXYCODONE [Concomitant]
     Dosage: 5 MG, EACH MORNING
  6. OXYCODONE [Concomitant]
     Dosage: UNK, AS NEEDED
  7. TYLENOL /USA/ [Concomitant]
  8. VALIUM [Concomitant]
     Dosage: 2.5 MG, UNK
  9. CALCIUM CARBONATE [Concomitant]

REACTIONS (5)
  - ARTHROPATHY [None]
  - FALL [None]
  - HEADACHE [None]
  - POST PROCEDURAL COMPLICATION [None]
  - WRIST FRACTURE [None]
